FAERS Safety Report 17354636 (Version 1)
Quarter: 2020Q1

REPORT INFORMATION
  Report Type: Spontaneous
  Country: US (occurrence: US)
  Receive Date: 20200130
  Receipt Date: 20200130
  Transmission Date: 20200409
  Serious: Yes (Disabling, Other)
  Sender: FDA-Public Use
  Company Number: None

PATIENT
  Age: 11 Year
  Sex: Female
  Weight: 64.35 kg

DRUGS (3)
  1. OMEPRAZOLE DR 20 MG CAPSULE [Suspect]
     Active Substance: OMEPRAZOLE
     Indication: GASTROOESOPHAGEAL REFLUX DISEASE
     Dosage: ?          QUANTITY:1 CAPSULE(S);?
     Route: 048
     Dates: start: 20200121, end: 20200124
  2. DICYCLOMINE [Concomitant]
     Active Substance: DICYCLOMINE HYDROCHLORIDE
  3. SMARTY PANTS FOR TEENS (DAILY MULTIVITAMIN) [Concomitant]

REACTIONS (2)
  - Dyspnoea [None]
  - Rash pruritic [None]

NARRATIVE: CASE EVENT DATE: 20200121
